FAERS Safety Report 5764402-3 (Version None)
Quarter: 2008Q2

REPORT INFORMATION
  Report Type: 
  Country: None (occurrence: None)
  Receive Date: 20080605
  Receipt Date: 20080522
  Transmission Date: 20081010
  Serious: No
  Sender: FDA-Public Use
  Company Number: TPA2008A00772

PATIENT
  Sex: Male

DRUGS (3)
  1. ACTOS [Suspect]
     Indication: DRUG USE FOR UNKNOWN INDICATION
     Dosage: PER ORAL; 30 MG, PER ORAL; PER ORAL; 30 MG, PER ORAL
     Route: 048
     Dates: start: 20080101, end: 20080101
  2. ACTOS [Suspect]
     Indication: DRUG USE FOR UNKNOWN INDICATION
     Dosage: PER ORAL; 30 MG, PER ORAL; PER ORAL; 30 MG, PER ORAL
     Route: 048
     Dates: start: 20080409, end: 20080101
  3. ACTOS [Suspect]
     Indication: DRUG USE FOR UNKNOWN INDICATION
     Dosage: PER ORAL; 30 MG, PER ORAL; PER ORAL; 30 MG, PER ORAL
     Route: 048
     Dates: start: 20080521

REACTIONS (3)
  - CIRCUMSTANCE OR INFORMATION CAPABLE OF LEADING TO MEDICATION ERROR [None]
  - INTERCEPTED DRUG DISPENSING ERROR [None]
  - PHARMACEUTICAL PRODUCT COMPLAINT [None]
